FAERS Safety Report 19471441 (Version 1)
Quarter: 2021Q2

REPORT INFORMATION
  Report Type: Spontaneous
  Country: US (occurrence: US)
  Receive Date: 20210628
  Receipt Date: 20210628
  Transmission Date: 20210717
  Serious: No
  Sender: FDA-Public Use
  Company Number: None

PATIENT
  Age: 65 Year
  Sex: Female
  Weight: 76.5 kg

DRUGS (2)
  1. TAXOTERE [Suspect]
     Active Substance: DOCETAXEL
     Indication: INVASIVE DUCTAL BREAST CARCINOMA
     Route: 041
  2. TAXOTERE [Concomitant]
     Active Substance: DOCETAXEL
     Dates: start: 20210628, end: 20210628

REACTIONS (4)
  - Abdominal discomfort [None]
  - Infusion related reaction [None]
  - Erythema [None]
  - Respiration abnormal [None]

NARRATIVE: CASE EVENT DATE: 20210625
